FAERS Safety Report 4665076-5 (Version None)
Quarter: 2005Q2

REPORT INFORMATION
  Report Type: 
  Country: None (occurrence: None)
  Receive Date: 20050517
  Receipt Date: 20050428
  Transmission Date: 20051028
  Serious: Yes (Death, Hospitalization)
  Sender: FDA-Public Use
  Company Number: FR_050406330

PATIENT
  Age: 1 Day
  Sex: Male
  Weight: 5 kg

DRUGS (1)
  1. ZYPREXA [Suspect]
     Dates: start: 20040928

REACTIONS (5)
  - CARDIOMEGALY [None]
  - DEATH NEONATAL [None]
  - DRUG EXPOSURE DURING PREGNANCY [None]
  - FOETAL MACROSOMIA [None]
  - NEONATAL DISORDER [None]
